FAERS Safety Report 5136606-4 (Version None)
Quarter: 2006Q4

REPORT INFORMATION
  Report Type: 
  Country: None (occurrence: None)
  Receive Date: 20061027
  Receipt Date: 20061025
  Transmission Date: 20070319
  Serious: Yes (Hospitalization)
  Sender: FDA-Public Use
  Company Number: MX-ABBOTT-06P-107-0347934-00

PATIENT
  Sex: Female
  Weight: 60 kg

DRUGS (1)
  1. HUMIRA [Suspect]
     Indication: RHEUMATOID ARTHRITIS
     Dates: start: 20040612

REACTIONS (2)
  - BREAST CANCER IN SITU [None]
  - LYMPHADENOPATHY [None]
